FAERS Safety Report 23286689 (Version 4)
Quarter: 2025Q1

REPORT INFORMATION
  Report Type: Report from Study
  Country: DE (occurrence: DE)
  Receive Date: 20231212
  Receipt Date: 20250126
  Transmission Date: 20250408
  Serious: Yes (Hospitalization)
  Sender: ROCHE
  Company Number: DE-ROCHE-2193519

PATIENT
  Age: 56 Year
  Sex: Female

DRUGS (19)
  1. OCREVUS [Suspect]
     Active Substance: OCRELIZUMAB
     Indication: Relapsing-remitting multiple sclerosis
     Dosage: 600 MG 182, 183 DAYS
     Route: 040
     Dates: start: 20180220
  2. OCREVUS [Suspect]
     Active Substance: OCRELIZUMAB
     Route: 040
     Dates: start: 20180903
  3. OCREVUS [Suspect]
     Active Substance: OCRELIZUMAB
     Route: 040
     Dates: start: 20190919
  4. OCREVUS [Suspect]
     Active Substance: OCRELIZUMAB
     Route: 040
     Dates: start: 20200703
  5. OCREVUS [Suspect]
     Active Substance: OCRELIZUMAB
     Route: 040
  6. OCREVUS [Suspect]
     Active Substance: OCRELIZUMAB
     Route: 040
  7. OCREVUS [Suspect]
     Active Substance: OCRELIZUMAB
     Route: 040
     Dates: start: 20180220
  8. COMIRNATY (TOZINAMERAN) [Suspect]
     Active Substance: TOZINAMERAN
     Indication: COVID-19 prophylaxis
     Route: 065
  9. NABIXIMOLS [Suspect]
     Active Substance: NABIXIMOLS
     Indication: Product used for unknown indication
     Dosage: 0-0-0-1
     Route: 065
  10. LYRICA [Concomitant]
     Active Substance: PREGABALIN
  11. DALFAMPRIDINE [Concomitant]
     Active Substance: DALFAMPRIDINE
  12. METOPROLOL [Concomitant]
     Active Substance: METOPROLOL
     Dosage: 0.5-0-0
  13. VALSARTAN [Concomitant]
     Active Substance: VALSARTAN
  14. PROPIVERINE HYDROCHLORIDE [Concomitant]
     Active Substance: PROPIVERINE HYDROCHLORIDE
  15. TIMOLOL MALEATE [Concomitant]
     Active Substance: TIMOLOL MALEATE
  16. CANDESARTAN [Concomitant]
     Active Substance: CANDESARTAN
  17. LATANOPROST [Concomitant]
     Active Substance: LATANOPROST
     Dosage: BOTH EYES
  18. VARICELLA-ZOSTER VIRUS STRAIN OKA/MERCK LIVE ANTIGEN [Concomitant]
     Active Substance: VARICELLA-ZOSTER VIRUS STRAIN OKA/MERCK LIVE ANTIGEN
     Dates: start: 20190902
  19. TILIDINE HYDROCHLORIDE [Concomitant]
     Active Substance: TILIDINE HYDROCHLORIDE

REACTIONS (11)
  - Fatigue [Recovering/Resolving]
  - Trigeminal neuralgia [Recovered/Resolved]
  - Gait disturbance [Not Recovered/Not Resolved]
  - Gingival blister [Recovered/Resolved]
  - Rash [Recovered/Resolved]
  - Drug hypersensitivity [Not Recovered/Not Resolved]
  - SARS-CoV-2 antibody test negative [Unknown]
  - COVID-19 [Recovered/Resolved]
  - Nasopharyngitis [Recovered/Resolved]
  - Pain in extremity [Recovered/Resolved]
  - Confusional state [Recovered/Resolved]

NARRATIVE: CASE EVENT DATE: 20190301
